FAERS Safety Report 5701455-2 (Version None)
Quarter: 2008Q2

REPORT INFORMATION
  Report Type: 
  Country: None (occurrence: None)
  Receive Date: 20080407
  Receipt Date: 20080326
  Transmission Date: 20081010
  Serious: Yes (Death, Other)
  Sender: FDA-Public Use
  Company Number: 2007-03997

PATIENT
  Age: 56 Year
  Sex: Male
  Weight: 52 kg

DRUGS (12)
  1. VELCADE [Suspect]
     Indication: MULTIPLE MYELOMA
     Dosage: 2.00 MG, INTRAVENOUS
     Route: 042
     Dates: start: 20070323, end: 20070702
  2. DECADRON [Suspect]
     Indication: MULTIPLE MYELOMA
     Dosage: 4.00 MG, ORAL
     Route: 048
     Dates: start: 20070323, end: 20070703
  3. LANSOPRAZOLE [Concomitant]
  4. FLUCONAZOLE [Concomitant]
  5. OXYCONTIN [Concomitant]
  6. LAXOBERON (SODIUM PICOSULFATE) [Concomitant]
  7. SULFAMETHOXAZOLE AND TRIMETHOPRIM [Concomitant]
  8. MAGNEXIUM OXIDE (MAGNESIUM OXIDE) [Concomitant]
  9. ZOMETA [Concomitant]
  10. HIRUDOID (HEPARINOID) [Concomitant]
  11. CLOBETASOL PROPIONATE [Concomitant]
  12. CATLEP (INDOMETACIN) [Concomitant]

REACTIONS (21)
  - ABDOMINAL DISTENSION [None]
  - ASPARTATE AMINOTRANSFERASE INCREASED [None]
  - BLOOD ALKALINE PHOSPHATASE INCREASED [None]
  - BLOOD LACTATE DEHYDROGENASE INCREASED [None]
  - BLOOD SODIUM DECREASED [None]
  - C-REACTIVE PROTEIN INCREASED [None]
  - CHEST DISCOMFORT [None]
  - DIARRHOEA [None]
  - DISEASE PROGRESSION [None]
  - DIVERTICULITIS [None]
  - DYSPHONIA [None]
  - ECZEMA [None]
  - GAMMA-GLUTAMYLTRANSFERASE INCREASED [None]
  - HAEMOGLOBIN DECREASED [None]
  - LYMPHOCYTE COUNT DECREASED [None]
  - NEUTROPHIL COUNT DECREASED [None]
  - ORTHOSTATIC HYPOTENSION [None]
  - PLATELET COUNT DECREASED [None]
  - PLEURAL FIBROSIS [None]
  - RASH [None]
  - WHITE BLOOD CELL COUNT DECREASED [None]
